FAERS Safety Report 7290188-X (Version None)
Quarter: 2011Q1

REPORT INFORMATION
  Report Type: 
  Country: None (occurrence: None)
  Receive Date: 20110214
  Receipt Date: 20110131
  Transmission Date: 20110831
  Serious: Yes (Hospitalization, Other)
  Sender: FDA-Public Use
  Company Number: US-CELGENEUS-163-21880-10123198

PATIENT
  Sex: Male
  Weight: 79.45 kg

DRUGS (39)
  1. FLOMAX [Concomitant]
     Route: 048
  2. DULCOLAX [Concomitant]
     Route: 048
  3. SIMETHICONE [Concomitant]
     Route: 048
  4. FERROUS SULFATE TAB [Concomitant]
     Route: 048
  5. SENNA [Concomitant]
     Route: 048
  6. ALOE VESTA [Concomitant]
     Route: 065
  7. COLACE [Concomitant]
     Route: 048
  8. POTASSIUM CHLORIDE [Concomitant]
     Route: 048
  9. DECADRON [Concomitant]
     Route: 048
  10. NEXIUM [Concomitant]
     Route: 048
  11. COUMADIN [Concomitant]
     Route: 048
  12. LYRICA [Concomitant]
     Route: 048
  13. LISINOPRIL [Concomitant]
     Route: 065
     Dates: start: 20101201
  14. LISINOPRIL [Concomitant]
     Route: 065
  15. REVLIMID [Suspect]
     Indication: MULTIPLE MYELOMA
     Route: 048
     Dates: start: 20100924, end: 20101201
  16. MIRALAX [Concomitant]
     Route: 048
  17. LIDOCAINE [Concomitant]
     Route: 061
  18. PENICILLIN [Concomitant]
     Indication: INFECTION
     Route: 065
  19. MS CONTIN [Concomitant]
     Route: 048
  20. LIPITOR [Concomitant]
     Route: 048
  21. FINASTERIDE [Concomitant]
     Route: 048
  22. MULTI-VITAMINS [Concomitant]
     Route: 048
  23. SPIRIVA [Concomitant]
     Route: 055
  24. DULCOLAX [Concomitant]
     Route: 048
  25. PROSCAR [Concomitant]
     Route: 048
  26. REVLIMID [Suspect]
     Route: 048
  27. MS CONTIN [Concomitant]
     Route: 065
  28. OMEPRAZOLE [Concomitant]
     Route: 048
  29. DOCUSATE SODIUM [Concomitant]
     Route: 048
  30. ALLOPURINOL [Concomitant]
     Route: 048
  31. LIDODERM [Concomitant]
     Route: 065
  32. PREGABALIN [Concomitant]
     Route: 048
  33. ASCORBIC ACID [Concomitant]
     Route: 048
  34. HYDROMORPHONE HCL [Concomitant]
     Indication: PAIN
     Route: 051
  35. MEGACE [Concomitant]
     Route: 048
  36. VALIUM [Concomitant]
     Route: 048
  37. VORINOZOLE [Concomitant]
     Indication: ASPERGILLOSIS
     Route: 065
  38. LACTULOSE [Concomitant]
     Route: 048
  39. HYDROCHLOROTHIAZIDE [Concomitant]
     Route: 048

REACTIONS (7)
  - HAEMATOCHEZIA [None]
  - ABDOMINAL PAIN [None]
  - INFECTION [None]
  - PARAESTHESIA [None]
  - CONSTIPATION [None]
  - PYREXIA [None]
  - PATHOLOGICAL FRACTURE [None]
